FAERS Safety Report 17679668 (Version 1)
Quarter: 2020Q2

REPORT INFORMATION
  Report Type: Spontaneous
  Country: US (occurrence: US)
  Receive Date: 20200417
  Receipt Date: 20200417
  Transmission Date: 20200714
  Serious: No
  Sender: FDA-Public Use
  Company Number: None

PATIENT
  Age: 54 Year
  Sex: Female
  Weight: 72 kg

DRUGS (7)
  1. EFFEXOR [Concomitant]
     Active Substance: VENLAFAXINE HYDROCHLORIDE
  2. PROVIGIL [Concomitant]
     Active Substance: MODAFINIL
  3. TALTZ [Suspect]
     Active Substance: IXEKIZUMAB
     Indication: PSORIATIC ARTHROPATHY
     Dosage: ?          QUANTITY:1 INJECTION(S);OTHER FREQUENCY:1 X MO.;?
     Route: 058
     Dates: start: 20200415
  4. ALEVE [Concomitant]
     Active Substance: NAPROXEN SODIUM
  5. LAMICTAL [Concomitant]
     Active Substance: LAMOTRIGINE
  6. AVORSTATIN [Concomitant]
  7. ADVIL [Concomitant]
     Active Substance: IBUPROFEN

REACTIONS (2)
  - Injection site erythema [None]
  - Injection site swelling [None]

NARRATIVE: CASE EVENT DATE: 20200416
